FAERS Safety Report 17888676 (Version 1)
Quarter: 2020Q2

REPORT INFORMATION
  Report Type: Spontaneous
  Country: US (occurrence: US)
  Receive Date: 20200611
  Receipt Date: 20200611
  Transmission Date: 20200714
  Serious: Yes (Hospitalization, Disabling)
  Sender: FDA-Public Use
  Company Number: None

PATIENT
  Sex: Female
  Weight: 97.65 kg

DRUGS (1)
  1. ACCUTANE [Suspect]
     Active Substance: ISOTRETINOIN
     Indication: ACNE

REACTIONS (6)
  - General physical health deterioration [None]
  - Myalgia [None]
  - Asthenia [None]
  - Irritable bowel syndrome [None]
  - Fatigue [None]
  - Arthralgia [None]
